FAERS Safety Report 17461726 (Version 1)
Quarter: 2020Q1

REPORT INFORMATION
  Report Type: Report from Study
  Country: VN (occurrence: VN)
  Receive Date: 20200226
  Receipt Date: 20200226
  Transmission Date: 20200409
  Serious: Yes (Other)
  Sender: FDA-Public Use
  Company Number: VN-ROCHE-2557485

PATIENT

DRUGS (1)
  1. ALTEPLASE. [Suspect]
     Active Substance: ALTEPLASE
     Indication: INTRAVENTRICULAR HAEMORRHAGE
     Dosage: 1 MG/ML, UPTO 9 DOSES
     Route: 050

REACTIONS (7)
  - CNS ventriculitis [Unknown]
  - Device occlusion [Unknown]
  - Haemorrhage intracranial [Unknown]
  - Urinary tract infection [Unknown]
  - Hydrocephalus [Unknown]
  - Catheter site haemorrhage [Unknown]
  - Pneumonia [Unknown]
